FAERS Safety Report 7006310-6 (Version None)
Quarter: 2010Q3

REPORT INFORMATION
  Report Type: 
  Country: None (occurrence: None)
  Receive Date: 20100921
  Receipt Date: 20100913
  Transmission Date: 20110219
  Serious: Yes (Death, Hospitalization, Other)
  Sender: FDA-Public Use
  Company Number: US-AMGEN-QUU437806

PATIENT
  Sex: Female

DRUGS (4)
  1. ARANESP [Suspect]
     Indication: RENAL FAILURE CHRONIC
     Dates: start: 20070507, end: 20100210
  2. UNSPECIFIED MEDICATION [Concomitant]
  3. UNSPECIFIED ANTIDIABETIC AGENT [Concomitant]
  4. UNSPECIFIED ANTIHYPERTENSIVE AGENT [Concomitant]

REACTIONS (9)
  - ASCITES [None]
  - DIABETES MELLITUS [None]
  - DRUG INEFFECTIVE [None]
  - GASTRIC CANCER [None]
  - HOSPITALISATION [None]
  - HYPERTENSION [None]
  - OVARIAN CANCER [None]
  - OVERWEIGHT [None]
  - PNEUMONIA [None]
